FAERS Safety Report 7423454-5 (Version None)
Quarter: 2011Q2

REPORT INFORMATION
  Report Type: 
  Country: None (occurrence: None)
  Receive Date: 20110413
  Receipt Date: 20110413
  Transmission Date: 20111010
  Serious: Yes (Life-Threatening, Hospitalization)
  Sender: FDA-Public Use
  Company Number: None

PATIENT
  Age: 65 Year
  Sex: Male
  Weight: 97.2 kg

DRUGS (1)
  1. IOPAMIDOL [Suspect]
     Dosage: ONCE IV
     Route: 042
     Dates: start: 20110309, end: 20110309

REACTIONS (7)
  - ANAPHYLACTIC REACTION [None]
  - RESPIRATORY DEPRESSION [None]
  - PARAESTHESIA ORAL [None]
  - DYSPNOEA [None]
  - PRURITUS [None]
  - THROAT TIGHTNESS [None]
  - THROAT IRRITATION [None]
